FAERS Safety Report 11081906 (Version 3)
Quarter: 2015Q4

REPORT INFORMATION
  Report Type: Spontaneous
  Country: IT (occurrence: IT)
  Receive Date: 20150501
  Receipt Date: 20151014
  Transmission Date: 20160304
  Serious: Yes (Hospitalization, Other)
  Sender: FDA-Public Use
  Company Number: IT-BRISTOL-MYERS SQUIBB COMPANY-BMS-2015-025824

PATIENT
  Age: 61 Year
  Sex: Male

DRUGS (1)
  1. YERVOY [Suspect]
     Active Substance: IPILIMUMAB
     Indication: METASTATIC MALIGNANT MELANOMA
     Dosage: 240 MG, QCYCLE
     Route: 042
     Dates: start: 20150223, end: 20150316

REACTIONS (8)
  - Asthenia [Not Recovered/Not Resolved]
  - Large intestine perforation [Unknown]
  - Gait disturbance [Not Recovered/Not Resolved]
  - Peritonitis [Unknown]
  - Somnolence [Not Recovered/Not Resolved]
  - Necrotising colitis [Not Recovered/Not Resolved]
  - Colectomy [Unknown]
  - Septic shock [Unknown]

NARRATIVE: CASE EVENT DATE: 20150412
